FAERS Safety Report 10004092 (Version 3)
Quarter: 2014Q2

REPORT INFORMATION
  Report Type: Spontaneous
  Country: US (occurrence: US)
  Receive Date: 20140312
  Receipt Date: 20140416
  Transmission Date: 20141212
  Serious: Yes (Other)
  Sender: FDA-Public Use
  Company Number: US-TEVA-466399USA

PATIENT
  Age: 74 Year
  Sex: Male
  Weight: 133.48 kg

DRUGS (7)
  1. PROAIR HFA [Suspect]
     Indication: CHRONIC OBSTRUCTIVE PULMONARY DISEASE
     Dosage: EVERY 4 HRS PRN (3-4 TIMES DAILY PRN)
     Dates: start: 201311
  2. PROAIR HFA [Suspect]
     Dosage: 2 PUFFS, 3 OR 4 TIMES A DAY
  3. SPIRIVA [Concomitant]
     Indication: CHRONIC OBSTRUCTIVE PULMONARY DISEASE
  4. INSULIN [Concomitant]
     Indication: DIABETES MELLITUS
  5. LASIX [Concomitant]
  6. HEART MEDICATION [Concomitant]
     Indication: CARDIAC DISORDER
  7. BLOOD PRESSURE MEDICATION [Concomitant]
     Indication: BLOOD PRESSURE ABNORMAL

REACTIONS (3)
  - Large intestine polyp [Recovered/Resolved]
  - Diarrhoea [Recovered/Resolved]
  - Blood potassium increased [Unknown]
